FAERS Safety Report 4731277-0 (Version None)
Quarter: 2005Q3

REPORT INFORMATION
  Report Type: 
  Country: None (occurrence: None)
  Receive Date: 20050802
  Receipt Date: 20050721
  Transmission Date: 20060218
  Serious: Yes (Hospitalization)
  Sender: FDA-Public Use
  Company Number: CZ-BRISTOL-MYERS SQUIBB COMPANY-13047626

PATIENT
  Age: 34 Year
  Sex: Male

DRUGS (3)
  1. CEFZIL [Suspect]
     Indication: PYREXIA
     Route: 048
     Dates: start: 20050628, end: 20050705
  2. CEFZIL [Suspect]
     Indication: HEADACHE
     Route: 048
     Dates: start: 20050628, end: 20050705
  3. IBUPROFEN [Concomitant]

REACTIONS (2)
  - FACE OEDEMA [None]
  - RASH MACULO-PAPULAR [None]
